FAERS Safety Report 9329099 (Version 1)
Quarter: 2013Q2

REPORT INFORMATION
  Report Type: Spontaneous
  Country: US (occurrence: US)
  Receive Date: 20130604
  Receipt Date: 20130604
  Transmission Date: 20140414
  Serious: Yes (Other)
  Sender: FDA-Public Use
  Company Number: US-SANOFI-AVENTIS-2013SA022497

PATIENT
  Age: 70 Year
  Sex: Male
  Weight: 99.79 kg

DRUGS (22)
  1. LANTUS [Suspect]
     Indication: DIABETES MELLITUS
     Dosage: DOSE:22 UNIT(S)
     Route: 058
     Dates: start: 2000
  2. GLUCAGON [Concomitant]
  3. HUMALOG [Concomitant]
     Dosage: 2-12 UNITS
  4. XALATAN [Concomitant]
  5. METOPROLOL TARTRATE [Concomitant]
  6. CELLCEPT [Concomitant]
  7. PRILOSEC [Concomitant]
  8. PRAVACHOL [Concomitant]
  9. PREDNISONE [Concomitant]
  10. SERTRALINE [Concomitant]
  11. NORVASC [Concomitant]
  12. ECOTRIN [Concomitant]
  13. ZYRTEC [Concomitant]
  14. VITAMIN D3 [Concomitant]
  15. COLACE [Concomitant]
  16. COSOPT [Concomitant]
     Dosage: 2-0.5 %?OPHTHALMIC SOLUTION
  17. ZETIA [Concomitant]
  18. FERROUS SULFATE [Concomitant]
  19. PROSCAR [Concomitant]
  20. FLONASE [Concomitant]
  21. GENGRAF [Concomitant]
  22. LACTOBACILLUS ACIDOPHILUS/LACTOBACILLUS BULGARICUS [Concomitant]
     Route: 048

REACTIONS (2)
  - Hypoglycaemia [Unknown]
  - Blood glucose increased [Unknown]
